FAERS Safety Report 6250187-3 (Version None)
Quarter: 2009Q2

REPORT INFORMATION
  Report Type: 
  Country: None (occurrence: None)
  Receive Date: 20090626
  Receipt Date: 20090615
  Transmission Date: 20091009
  Serious: Yes (Other)
  Sender: FDA-Public Use
  Company Number: WAES 0906USA04157

PATIENT

DRUGS (2)
  1. DECADRON [Suspect]
     Indication: MULTIPLE MYELOMA
     Dosage: 20 MG/WKY/PO
     Route: 048
  2. AUTOLOGUS INTERLEUKIN-1-RECEPTOR [Concomitant]

REACTIONS (1)
  - MYOCARDIAL INFARCTION [None]
